FAERS Safety Report 24120474 (Version 1)
Quarter: 2024Q3

REPORT INFORMATION
  Report Type: Spontaneous
  Country: AU (occurrence: AU)
  Receive Date: 20240722
  Receipt Date: 20240722
  Transmission Date: 20241017
  Serious: Yes (Other)
  Sender: SANDOZ
  Company Number: AU-ASPEN-AUS2024AU003894

PATIENT
  Age: 13 Year
  Sex: Male

DRUGS (7)
  1. ALEMTUZUMAB [Suspect]
     Active Substance: ALEMTUZUMAB
     Indication: Immunomodulatory therapy
     Dosage: 0.9 MG/KG
     Route: 065
  2. FLUDARABINE PHOSPHATE [Suspect]
     Active Substance: FLUDARABINE PHOSPHATE
     Indication: Allogenic stem cell transplantation
     Dosage: 150 MG/M2
     Route: 065
  3. FLUDARABINE PHOSPHATE [Suspect]
     Active Substance: FLUDARABINE PHOSPHATE
     Indication: Osteopetrosis
     Dosage: UNK
     Route: 065
  4. THIOTEPA [Suspect]
     Active Substance: THIOTEPA
     Indication: Allogenic stem cell transplantation
     Dosage: 10 MG/KG
     Route: 065
  5. THIOTEPA [Suspect]
     Active Substance: THIOTEPA
     Indication: Osteopetrosis
     Dosage: UNK
     Route: 065
  6. TREOSULFAN [Suspect]
     Active Substance: TREOSULFAN
     Indication: Allogenic stem cell transplantation
     Dosage: 14 G/M2 ((DAY 1)
     Route: 065
  7. TREOSULFAN [Suspect]
     Active Substance: TREOSULFAN
     Indication: Osteopetrosis
     Dosage: 42 G/M2 (OVER THREE CONSECUTIVE DAYS)
     Route: 065

REACTIONS (2)
  - Graft versus host disease in skin [Unknown]
  - Off label use [Unknown]
